FAERS Safety Report 4485331-1 (Version None)
Quarter: 2004Q3

REPORT INFORMATION
  Report Type: 
  Country: None (occurrence: None)
  Receive Date: 20040921
  Receipt Date: 20040521
  Transmission Date: 20050211
  Serious: Yes (Hospitalization)
  Sender: FDA-Public Use
  Company Number: 163-20785-04050557

PATIENT
  Age: 56 Year
  Sex: Female
  Weight: 35.4713 kg

DRUGS (12)
  1. THALOMID [Suspect]
     Indication: CARCINOID TUMOUR
     Dosage: 150 MG, BID, ORAL
     Route: 048
     Dates: start: 20040419
  2. DOCETAXEL (DOCETAXEL) [Suspect]
     Indication: CARCINOID TUMOUR
     Dosage: 20 MG, Q WEEK, INTRAVENOUS
     Route: 042
     Dates: start: 20040412
  3. MOTRIN [Concomitant]
  4. PERCOCET [Concomitant]
  5. PRILOSEC [Concomitant]
  6. IMITREX [Concomitant]
  7. ALBUTEROL [Concomitant]
  8. TRAZODONE HCL [Concomitant]
  9. COUMADINE (WARARIN SODIUM) [Concomitant]
  10. DECADRON [Concomitant]
  11. SENOKOT [Concomitant]
  12. LACTULOSE [Concomitant]

REACTIONS (1)
  - PNEUMOTHORAX [None]
